FAERS Safety Report 21760002 (Version 1)
Quarter: 2022Q4

REPORT INFORMATION
  Report Type: Spontaneous
  Country: RO (occurrence: RO)
  Receive Date: 20221221
  Receipt Date: 20221221
  Transmission Date: 20230113
  Serious: Yes (Life-Threatening, Hospitalization, Other)
  Sender: FDA-Public Use
  Company Number: RO-MACLEODS PHARMACEUTICALS US LTD-MAC2022038842

PATIENT

DRUGS (1)
  1. TRAMADOL [Suspect]
     Active Substance: TRAMADOL
     Indication: Product used for unknown indication
     Dosage: UNK
     Route: 065

REACTIONS (8)
  - Cutaneous vasculitis [Recovering/Resolving]
  - Tubulointerstitial nephritis [Recovering/Resolving]
  - Haemorrhagic diathesis [Recovering/Resolving]
  - Metabolic acidosis [Recovering/Resolving]
  - Leukocyturia [Recovering/Resolving]
  - Anaemia [Unknown]
  - Bradycardia [Recovering/Resolving]
  - Hypotension [Recovering/Resolving]
